FAERS Safety Report 11037332 (Version 1)
Quarter: 2015Q2

REPORT INFORMATION
  Report Type: Spontaneous
  Country: US (occurrence: US)
  Receive Date: 20150416
  Receipt Date: 20150416
  Transmission Date: 20150821
  Serious: No
  Sender: FDA-Public Use
  Company Number: US-PFIZER INC-2015129112

PATIENT
  Age: 58 Year
  Sex: Female
  Weight: 58 kg

DRUGS (6)
  1. PROGESTERONE SR [Concomitant]
     Dosage: 25 MG, DAILY
     Route: 048
     Dates: start: 201501
  2. ESTRADIOL. [Concomitant]
     Active Substance: ESTRADIOL
     Indication: OSTEOPOROSIS
     Dosage: 0.025 MG, CUT IN HALF, HALF, PLACE 1/2 PATCH TO HIP
     Dates: start: 201501
  3. VENLAFAXINE HCL [Suspect]
     Active Substance: VENLAFAXINE HYDROCHLORIDE
     Indication: DEPRESSION
     Dosage: 37.5 MG, DAILY
     Route: 048
     Dates: start: 201503
  4. SYNTHROID [Concomitant]
     Active Substance: LEVOTHYROXINE SODIUM
     Dosage: 25 ?G, DAILY
     Route: 048
     Dates: start: 2011
  5. NATURE-THROID [Concomitant]
     Active Substance: THYROID, PORCINE
     Dosage: 32.5 MG, DAILY
     Route: 048
     Dates: start: 2011
  6. EFFEXOR XR [Suspect]
     Active Substance: VENLAFAXINE HYDROCHLORIDE
     Indication: DEPRESSION
     Dosage: 37.5 MG, DAILY
     Route: 048
     Dates: start: 2005

REACTIONS (3)
  - Condition aggravated [Not Recovered/Not Resolved]
  - Hypothyroidism [Unknown]
  - Neuropathy peripheral [Not Recovered/Not Resolved]

NARRATIVE: CASE EVENT DATE: 201206
